FAERS Safety Report 10156355 (Version 1)
Quarter: 2014Q2

REPORT INFORMATION
  Report Type: Spontaneous
  Country: GB (occurrence: GB)
  Receive Date: 20140507
  Receipt Date: 20140507
  Transmission Date: 20141212
  Serious: Yes (Disabling, Other)
  Sender: FDA-Public Use
  Company Number: GB-MERCK-1405GBR003480

PATIENT
  Sex: Female

DRUGS (5)
  1. ZISPIN SOLTAB [Suspect]
  2. AMITRIPTYLINE HYDROCHLORIDE [Concomitant]
  3. FUROSEMIDE [Concomitant]
  4. LORATADINE [Concomitant]
  5. STATIN (UNSPECIFIED) [Concomitant]
     Indication: HYPERCHOLESTEROLAEMIA

REACTIONS (2)
  - Pain in extremity [Recovered/Resolved with Sequelae]
  - Spinal pain [Unknown]
